FAERS Safety Report 10178569 (Version 2)
Quarter: 2014Q2

REPORT INFORMATION
  Report Type: Spontaneous
  Country: US (occurrence: US)
  Receive Date: 20140519
  Receipt Date: 20140519
  Transmission Date: 20141212
  Serious: Yes (Hospitalization)
  Sender: FDA-Public Use
  Company Number: US-SA-FABR-1003481

PATIENT
  Age: 57 Year
  Sex: Male
  Weight: 19.73 kg

DRUGS (4)
  1. FABRAZYME [Suspect]
     Indication: FABRY^S DISEASE
     Dosage: 1.03 MG/KG, Q2W
     Route: 042
     Dates: start: 20041215
  2. PHOSLO [Concomitant]
     Indication: RENAL FAILURE CHRONIC
     Dosage: 667 MG, TID
     Route: 065
  3. ADVAIR [Concomitant]
     Indication: CHRONIC OBSTRUCTIVE PULMONARY DISEASE
     Dosage: UNK
  4. ALBUTEROL [Concomitant]
     Indication: CHRONIC OBSTRUCTIVE PULMONARY DISEASE
     Dosage: UNK

REACTIONS (2)
  - Transient ischaemic attack [Recovered/Resolved]
  - Disease progression [Unknown]
